FAERS Safety Report 19974239 (Version 2)
Quarter: 2021Q4

REPORT INFORMATION
  Report Type: Spontaneous
  Country: US (occurrence: US)
  Receive Date: 20211020
  Receipt Date: 20211125
  Transmission Date: 20220304
  Serious: Yes (Other)
  Sender: FDA-Public Use
  Company Number: US-PFIZER INC-202101340613

PATIENT
  Age: 74 Year
  Sex: Male
  Weight: 117.91 kg

DRUGS (6)
  1. DOXYCYCLINE HYCLATE [Suspect]
     Active Substance: DOXYCYCLINE HYCLATE
     Indication: Cellulitis
     Dosage: 10 MG, TWICE A DAY
     Dates: start: 20211001
  2. PRADAXA [Concomitant]
     Active Substance: DABIGATRAN ETEXILATE MESYLATE
     Dosage: 150 MG, 2X/DAY
  3. METOPROLOL [Concomitant]
     Active Substance: METOPROLOL
     Dosage: 50 MG, 2X/DAY
  4. PANTOPRAZOLE [Concomitant]
     Active Substance: PANTOPRAZOLE
     Dosage: 40 MG, 1X/DAY
  5. FUROSEMIDE [Concomitant]
     Active Substance: FUROSEMIDE
     Dosage: 40 MG, 1X/DAY
  6. ROSUVASTATIN [Concomitant]
     Active Substance: ROSUVASTATIN
     Dosage: 10 MG, 1X/DAY

REACTIONS (4)
  - Blister [Recovered/Resolved]
  - Pustule [Recovered/Resolved]
  - Pain [Unknown]
  - Gait disturbance [Recovered/Resolved]

NARRATIVE: CASE EVENT DATE: 20211005
